FAERS Safety Report 15189830 (Version 4)
Quarter: 2019Q2

REPORT INFORMATION
  Report Type: Spontaneous
  Country: US (occurrence: US)
  Receive Date: 20180724
  Receipt Date: 20190611
  Transmission Date: 20190711
  Serious: No
  Sender: FDA-Public Use
  Company Number: US-PFIZER INC-2018296121

PATIENT
  Age: 74 Year
  Sex: Male

DRUGS (3)
  1. BOSULIF [Suspect]
     Active Substance: BOSUTINIB MONOHYDRATE
     Indication: METASTASES TO CENTRAL NERVOUS SYSTEM
  2. BOSULIF [Suspect]
     Active Substance: BOSUTINIB MONOHYDRATE
     Indication: CHRONIC MYELOID LEUKAEMIA
     Dosage: 100 MG, 1X/DAY
     Dates: start: 20180724
  3. BOSULIF [Suspect]
     Active Substance: BOSUTINIB MONOHYDRATE
     Indication: LUNG NEOPLASM MALIGNANT
     Dosage: 300 MG, 1X/DAY
     Route: 048

REACTIONS (3)
  - Oedema peripheral [Unknown]
  - Diarrhoea [Unknown]
  - Blood creatinine increased [Unknown]
